FAERS Safety Report 8920770 (Version 1)
Quarter: 2012Q4

REPORT INFORMATION
  Report Type: 
  Country: US (occurrence: US)
  Receive Date: 20121122
  Receipt Date: 20121122
  Transmission Date: 20130627
  Serious: No
  Sender: FDA-Public Use
  Company Number: US-009507513-1211USA004755

PATIENT
  Sex: Male
  Weight: 63.49 kg

DRUGS (6)
  1. MAXALT [Suspect]
     Indication: MIGRAINE
     Dosage: UNK, Once
     Route: 048
  2. IMITREX (SUMATRIPTAN SUCCINATE) [Suspect]
     Indication: MIGRAINE
     Dosage: UNK, Once
  3. TEGRETOL [Concomitant]
     Indication: BIPOLAR I DISORDER
     Dosage: 200 mg, 4x/day
  4. ZOLOFT [Concomitant]
     Indication: BIPOLAR I DISORDER
     Dosage: 100 mg, qd
  5. DURAGESIC [Concomitant]
     Indication: OSTEONECROSIS
     Dosage: 50 Microgram, UNK
  6. SINGULAIR [Concomitant]
     Indication: ASTHMA
     Dosage: 10 mg, qd
     Route: 048

REACTIONS (6)
  - Musculoskeletal discomfort [Recovered/Resolved]
  - Sensation of heaviness [Recovered/Resolved]
  - Blood pressure increased [Recovered/Resolved]
  - Chest pain [Recovered/Resolved]
  - Chest discomfort [Recovered/Resolved]
  - Chest discomfort [Recovered/Resolved]
